FAERS Safety Report 8446016 (Version 4)
Quarter: 2014Q2

REPORT INFORMATION
  Report Type: Report from Study
  Country: JP (occurrence: JP)
  Receive Date: 20120307
  Receipt Date: 20140512
  Transmission Date: 20141212
  Serious: Yes (Death, Life-Threatening, Hospitalization, Other)
  Sender: FDA-Public Use
  Company Number: JP-PFIZER INC-2011156692

PATIENT
  Age: 62 Year
  Sex: Male
  Weight: 56.8 kg

DRUGS (10)
  1. TEMSIROLIMUS [Suspect]
     Indication: RENAL CELL CARCINOMA
     Dosage: 25 MG, WEEKLY, FOR 4 CONSECUTIVE WEEKS
     Dates: start: 20110418, end: 20110607
  2. TEMSIROLIMUS [Suspect]
     Dosage: 25 MG, WEEKLY, FOR 4 CONSECUTIVE WEEKS
     Dates: start: 20110613, end: 20110703
  3. POLARAMINE [Concomitant]
     Indication: PROPHYLAXIS
     Dosage: 5 MG, 1X/DAY
     Route: 042
     Dates: start: 20110418
  4. BAYASPIRIN [Concomitant]
     Dosage: 100 MG, 1X/DAY
     Route: 048
  5. SAWACHION [Concomitant]
     Dosage: 5 MG, 2X/DAY
  6. NAIXAN [Concomitant]
     Dosage: 100 MG, 3X/DAY
  7. NIKORANMART [Concomitant]
     Dosage: 5 MG, 3X/DAY
  8. SYMMETREL [Concomitant]
     Dosage: 50 MG, 3X/DAY
  9. RENIVACE [Concomitant]
     Dosage: 2.5 MG, 1X/DAY
     Dates: end: 20110503
  10. BIOFERMIN [Concomitant]
     Dosage: 2 G, 3X/DAY

REACTIONS (11)
  - Disease progression [Fatal]
  - Renal cell carcinoma [Fatal]
  - Stomatitis [Recovering/Resolving]
  - Pneumonia bacterial [Recovering/Resolving]
  - Interstitial lung disease [Not Recovered/Not Resolved]
  - Pneumonia bacterial [Recovering/Resolving]
  - Septic shock [Recovering/Resolving]
  - Atypical pneumonia [Recovering/Resolving]
  - Pneumonia bacterial [Not Recovered/Not Resolved]
  - Anaemia [Recovering/Resolving]
  - Anaemia [Recovering/Resolving]
